FAERS Safety Report 4632739-7 (Version None)
Quarter: 2005Q2

REPORT INFORMATION
  Report Type: 
  Country: None (occurrence: None)
  Receive Date: 20050408
  Receipt Date: 20050408
  Transmission Date: 20051028
  Serious: Yes (Other)
  Sender: FDA-Public Use
  Company Number: None

PATIENT
  Sex: Male
  Weight: 107.5 kg

DRUGS (1)
  1. TOPAMAX [Suspect]
     Indication: NEUROPATHIC PAIN
     Dosage: 100 MG BID ORAL
     Route: 048
     Dates: start: 20041115, end: 20050215

REACTIONS (3)
  - DIZZINESS [None]
  - HYPOTHERMIA [None]
  - LETHARGY [None]
